FAERS Safety Report 12919837 (Version 2)
Quarter: 2016Q4

REPORT INFORMATION
  Report Type: Spontaneous
  Country: US (occurrence: US)
  Receive Date: 20161108
  Receipt Date: 20161114
  Transmission Date: 20170207
  Serious: No
  Sender: FDA-Public Use
  Company Number: US-PFIZER INC-2016516920

PATIENT
  Age: 39 Year
  Sex: Male
  Weight: 88.45 kg

DRUGS (1)
  1. VIAGRA [Suspect]
     Active Substance: SILDENAFIL CITRATE
     Indication: ERECTILE DYSFUNCTION
     Dosage: 50 MG, UNK
     Route: 048
     Dates: start: 20161001

REACTIONS (3)
  - Premature ejaculation [Unknown]
  - Drug effect incomplete [Unknown]
  - Product use issue [Unknown]
